FAERS Safety Report 25575073 (Version 1)
Quarter: 2025Q3

REPORT INFORMATION
  Report Type: Report from Study
  Country: CO (occurrence: CO)
  Receive Date: 20250718
  Receipt Date: 20250718
  Transmission Date: 20251020
  Serious: Yes (Other)
  Sender: UCB
  Company Number: CO-UCBSA-2025043599

PATIENT
  Age: 67 Year
  Sex: Male

DRUGS (2)
  1. BRIVARACETAM [Suspect]
     Active Substance: BRIVARACETAM
     Indication: Epilepsy
     Dosage: 100 MILLIGRAM PER 12 HOURS
     Route: 048
     Dates: start: 20250509, end: 20250709
  2. BRIVARACETAM [Concomitant]
     Active Substance: BRIVARACETAM
     Indication: Product used for unknown indication
     Route: 048

REACTIONS (5)
  - Petit mal epilepsy [Not Recovered/Not Resolved]
  - Mood altered [Not Recovered/Not Resolved]
  - Headache [Not Recovered/Not Resolved]
  - Product dispensing issue [Unknown]
  - Therapy interrupted [Unknown]

NARRATIVE: CASE EVENT DATE: 20250509
